FAERS Safety Report 7859332-7 (Version None)
Quarter: 2011Q4

REPORT INFORMATION
  Report Type: 
  Country: None (occurrence: None)
  Receive Date: 20111027
  Receipt Date: 20111018
  Transmission Date: 20120403
  Serious: Yes (Hospitalization)
  Sender: FDA-Public Use
  Company Number: US-US-EMD SERONO, INC.-7017965

PATIENT
  Sex: Female

DRUGS (2)
  1. UNSPECIFIED MEDICATIONS [Concomitant]
  2. REBIF [Suspect]
     Indication: MULTIPLE SCLEROSIS
     Route: 058
     Dates: start: 20100716, end: 20110801

REACTIONS (4)
  - CHILLS [None]
  - UPPER RESPIRATORY TRACT INFECTION [None]
  - PNEUMONIA STAPHYLOCOCCAL [None]
  - BACK PAIN [None]
